FAERS Safety Report 14106122 (Version 3)
Quarter: 2018Q2

REPORT INFORMATION
  Report Type: Spontaneous
  Country: US (occurrence: US)
  Receive Date: 20171019
  Receipt Date: 20180524
  Transmission Date: 20180711
  Serious: Yes (Death, Hospitalization, Other)
  Sender: FDA-Public Use
  Company Number: US-BRISTOL-MYERS SQUIBB COMPANY-BMS-2017-092928

PATIENT
  Sex: Male
  Weight: 90.25 kg

DRUGS (1)
  1. YERVOY [Suspect]
     Active Substance: IPILIMUMAB
     Indication: MALIGNANT MELANOMA
     Dosage: 900 MG, Q3WK
     Route: 042

REACTIONS (3)
  - Hospitalisation [Unknown]
  - Death [Fatal]
  - Fatigue [Unknown]
